FAERS Safety Report 8896682 (Version 2)
Quarter: 2012Q4

REPORT INFORMATION
  Report Type: 
  Country: US (occurrence: US)
  Receive Date: 20121108
  Receipt Date: 20121108
  Transmission Date: 20130627
  Serious: Yes (Hospitalization)
  Sender: FDA-Public Use
  Company Number: US-ABBOTT-12P-163-1003170-00

PATIENT
  Age: 51 None
  Sex: Female
  Weight: 41.77 kg

DRUGS (13)
  1. HUMIRA [Suspect]
     Indication: RHEUMATOID ARTHRITIS
     Dates: start: 2005, end: 2007
  2. ENBREL [Suspect]
     Indication: RHEUMATOID ARTHRITIS
     Dates: start: 1997, end: 2005
  3. ENBREL [Suspect]
     Dates: start: 2007
  4. PRENATAL VITAMINS [Concomitant]
     Indication: VITAMIN SUPPLEMENTATION
  5. ACTONEL [Concomitant]
     Indication: OSTEOPOROSIS
  6. PROGESTERONE [Concomitant]
     Indication: HORMONE REPLACEMENT THERAPY
  7. ESTRIOL [Concomitant]
     Indication: HORMONE REPLACEMENT THERAPY
  8. CALCIUM [Concomitant]
     Indication: MINERAL SUPPLEMENTATION
  9. IRON [Concomitant]
     Indication: MINERAL SUPPLEMENTATION
  10. VITAMIN D3 [Concomitant]
     Indication: VITAMIN SUPPLEMENTATION
  11. VITAMIN E [Concomitant]
     Indication: VITAMIN SUPPLEMENTATION
  12. FISH OIL [Concomitant]
     Indication: SUPPLEMENTATION THERAPY
  13. VITAMIN C [Concomitant]
     Indication: VITAMIN SUPPLEMENTATION

REACTIONS (9)
  - Weight decreased [Not Recovered/Not Resolved]
  - Vitamin B12 decreased [Unknown]
  - Confusional state [Recovered/Resolved]
  - Oedema peripheral [Recovering/Resolving]
  - Haemoglobin decreased [Unknown]
  - Drug ineffective [Not Recovered/Not Resolved]
  - Viral infection [Unknown]
  - White blood cell count decreased [Unknown]
  - Red blood cell count decreased [Unknown]
